FAERS Safety Report 6715468-5 (Version None)
Quarter: 2010Q2

REPORT INFORMATION
  Report Type: 
  Country: None (occurrence: None)
  Receive Date: 20100507
  Receipt Date: 20100428
  Transmission Date: 20101027
  Serious: Yes (Hospitalization)
  Sender: FDA-Public Use
  Company Number: DE-GENZYME-FABR-1000563

PATIENT

DRUGS (4)
  1. FABRAZYME [Suspect]
     Indication: FABRY'S DISEASE
     Dosage: 70 MG, Q2W
     Route: 042
     Dates: start: 20051027
  2. FABRAZYME [Suspect]
     Dosage: 0.3 MG/KG, UNK
     Route: 042
  3. FABRAZYME [Suspect]
     Dosage: 0.5 MG/KG, UNK
     Route: 042
  4. ASPIRIN [Concomitant]
     Indication: CEREBROVASCULAR ACCIDENT
     Dosage: 100 MG, UNK
     Dates: start: 20081001

REACTIONS (4)
  - CEREBROVASCULAR ACCIDENT [None]
  - CONDITION AGGRAVATED [None]
  - NEUROLOGICAL DECOMPENSATION [None]
  - SENSORY LOSS [None]
